FAERS Safety Report 6222971-3 (Version None)
Quarter: 2009Q2

REPORT INFORMATION
  Report Type: 
  Country: None (occurrence: None)
  Receive Date: 20090611
  Receipt Date: 20090601
  Transmission Date: 20091009
  Serious: Yes (Other)
  Sender: FDA-Public Use
  Company Number: MX-PFIZER INC-2009221919

PATIENT
  Age: 59 Year

DRUGS (11)
  1. BLINDED *PLACEBO [Suspect]
     Indication: COLORECTAL CANCER
     Dosage: 37.5 MG, 1X/DAY
     Route: 048
     Dates: start: 20090403, end: 20090430
  2. BLINDED SUNITINIB MALATE [Suspect]
     Indication: COLORECTAL CANCER
     Dosage: 37.5 MG, 1X/DAY
     Route: 048
     Dates: start: 20090403, end: 20090430
  3. IRINOTECAN HCL [Suspect]
     Indication: COLORECTAL CANCER
     Dosage: 220 MG, EVERY 2 WEEKS
     Route: 042
     Dates: start: 20090403, end: 20090508
  4. FLUOROURACIL [Suspect]
     Indication: COLORECTAL CANCER
     Dosage: 480 MG, EVERY 2 WEEKS
     Route: 040
     Dates: start: 20090403, end: 20090508
  5. FLUOROURACIL [Suspect]
     Dosage: 2900 MG, EVERY 2 WEEKS
     Route: 042
     Dates: start: 20090403, end: 20090510
  6. CALCIUM FOLINATE [Suspect]
     Indication: COLORECTAL CANCER
     Dosage: 250 MG, EVERY 2 WEEKS
     Route: 042
     Dates: start: 20090403, end: 20090508
  7. GLIBENCLAMIDE [Concomitant]
     Indication: DIABETES MELLITUS
     Dosage: 5 MG, 3X/DAY
     Route: 048
     Dates: start: 20070101
  8. CAPTOPRIL [Concomitant]
     Indication: HYPERTENSION
     Dosage: 25 MG, 2X/DAY
     Route: 048
     Dates: start: 20070101
  9. CIPROFLOXACIN [Concomitant]
     Indication: DIARRHOEA
     Dosage: 500 MG, 2X/DAY
     Route: 048
     Dates: start: 20090509
  10. FILGRASTIM [Concomitant]
     Indication: LEUKOPENIA
     Dosage: 300 UG, 1X/DAY
     Route: 048
     Dates: start: 20090510
  11. OMEPRAZOLE [Concomitant]
     Indication: PROPHYLAXIS
     Dosage: 20 MG, 1X/DAY
     Route: 048
     Dates: start: 20090409

REACTIONS (2)
  - CENTRAL LINE INFECTION [None]
  - NEUTROPENIA [None]
